FAERS Safety Report 20537198 (Version 2)
Quarter: 2022Q1

REPORT INFORMATION
  Report Type: Report from Study
  Country: AU (occurrence: AU)
  Receive Date: 20220302
  Receipt Date: 20220316
  Transmission Date: 20220423
  Serious: Yes (Other)
  Sender: FDA-Public Use
  Company Number: AU-TG THERAPEUTICS INC.-TGT002466

PATIENT

DRUGS (3)
  1. INVESTIGATIONAL PRODUCT [Suspect]
     Active Substance: INVESTIGATIONAL PRODUCT
     Indication: B-cell lymphoma
     Dosage: 300 MILLIGRAM, QD
     Route: 048
     Dates: start: 20200923
  2. UBLITUXIMAB [Suspect]
     Active Substance: UBLITUXIMAB
     Indication: B-cell lymphoma
     Dosage: 900 MG
     Route: 042
     Dates: start: 20200923
  3. UMBRALISIB [Suspect]
     Active Substance: UMBRALISIB
     Indication: B-cell lymphoma
     Dosage: 600 MILLIGRAM, QD
     Route: 048
     Dates: start: 20200923

REACTIONS (1)
  - Squamous cell carcinoma of skin [Recovered/Resolved]

NARRATIVE: CASE EVENT DATE: 20220223
